FAERS Safety Report 5985939-8 (Version None)
Quarter: 2008Q4

REPORT INFORMATION
  Report Type: 
  Country: None (occurrence: None)
  Receive Date: 20081205
  Receipt Date: 20081205
  Transmission Date: 20090506
  Serious: Yes (Other)
  Sender: FDA-Public Use
  Company Number: None

PATIENT
  Sex: Male
  Weight: 78.4723 kg

DRUGS (2)
  1. FLECTOR [Suspect]
     Indication: SPINAL DISORDER
     Dosage: 5 CM X 7 CM 2-3 X WEEKLY EPIDURAL
     Route: 008
     Dates: start: 20080815, end: 20081125
  2. FLECTOR [Suspect]
     Indication: SPINAL DISORDER
     Dosage: 2.5 CM X 3.5 CM 2-3 X WEEKLY EPIDURAL
     Route: 008
     Dates: start: 20080815, end: 20081125

REACTIONS (4)
  - ABDOMINAL DISCOMFORT [None]
  - ERYTHEMA [None]
  - RASH [None]
  - SWELLING [None]
